FAERS Safety Report 7689573-3 (Version None)
Quarter: 2011Q3

REPORT INFORMATION
  Report Type: 
  Country: None (occurrence: None)
  Receive Date: 20110817
  Receipt Date: 20110805
  Transmission Date: 20111222
  Serious: Yes (Other)
  Sender: FDA-Public Use
  Company Number: US-ELI_LILLY_AND_COMPANY-US201108003190

PATIENT
  Age: 42 Year
  Sex: Male

DRUGS (2)
  1. CYMBALTA [Suspect]
     Dosage: 60 MG, UNK
  2. CYMBALTA [Suspect]
     Indication: DEPRESSION
     Dosage: 30 MG, UNK

REACTIONS (2)
  - STEVENS-JOHNSON SYNDROME [None]
  - PRURITUS GENERALISED [None]
